FAERS Safety Report 12791582 (Version 4)
Quarter: 2017Q1

REPORT INFORMATION
  Report Type: Report from Study
  Country: AT (occurrence: AT)
  Receive Date: 20160929
  Receipt Date: 20170302
  Transmission Date: 20170428
  Serious: Yes (Hospitalization)
  Sender: FDA-Public Use
  Company Number: AT-ROCHE-1835315

PATIENT
  Age: 72 Year
  Sex: Male
  Weight: 71 kg

DRUGS (37)
  1. ZARZIO [Concomitant]
     Active Substance: FILGRASTIM
     Route: 065
     Dates: start: 20160809
  2. MYCOSTATIN [Concomitant]
     Active Substance: NYSTATIN
     Indication: STOMATITIS
     Route: 065
     Dates: start: 201608
  3. MEXALEN [Concomitant]
     Active Substance: ACETAMINOPHEN
     Route: 065
     Dates: start: 20160916, end: 20160916
  4. ARTERENOL [Concomitant]
     Active Substance: NORADRENALINE HYDROCHLORIDE
     Route: 065
     Dates: start: 20160926, end: 20161004
  5. TRAMAL [Concomitant]
     Active Substance: TRAMADOL
     Indication: PAIN PROPHYLAXIS
     Route: 065
     Dates: start: 20160930
  6. PREDNISONE. [Suspect]
     Active Substance: PREDNISONE
     Indication: B-CELL LYMPHOMA
     Dosage: MOST RECENT DOSE (100 MG) ON 20/SEP/2016?STARTING DOSE, ROUTE AND FREQUENCY FROM STUDY PROTOCOL
     Route: 048
     Dates: start: 20160804
  7. ALLOPURINOL. [Concomitant]
     Active Substance: ALLOPURINOL
     Indication: PROPHYLAXIS
     Route: 065
     Dates: start: 20160804
  8. PANTOLOC [Concomitant]
     Active Substance: PANTOPRAZOLE SODIUM
     Route: 065
     Dates: start: 20160804
  9. ZOLDEM [Concomitant]
     Active Substance: ZOLPIDEM TARTRATE
     Route: 065
     Dates: start: 20160720
  10. ZOFRAN [Concomitant]
     Active Substance: ONDANSETRON HYDROCHLORIDE
     Indication: PROPHYLAXIS OF NAUSEA AND VOMITING
     Route: 042
     Dates: start: 20160916, end: 20160916
  11. ZOFRAN [Concomitant]
     Active Substance: ONDANSETRON HYDROCHLORIDE
     Indication: NAUSEA
     Route: 048
     Dates: start: 20160808
  12. OXYGEN. [Concomitant]
     Active Substance: OXYGEN
     Indication: DYSPNOEA
     Route: 065
     Dates: start: 201607
  13. EFFORTIL [Concomitant]
     Active Substance: ETILEFRINE HYDROCHLORIDE
     Indication: HYPOTENSION
     Route: 065
     Dates: start: 20160916, end: 20160916
  14. MYCOSTATIN [Concomitant]
     Active Substance: NYSTATIN
     Indication: CANDIDA INFECTION
  15. MEXALEN [Concomitant]
     Active Substance: ACETAMINOPHEN
     Route: 065
     Dates: start: 20160919, end: 20160919
  16. PERFALGAN [Concomitant]
     Active Substance: ACETAMINOPHEN
     Indication: PYREXIA
     Route: 065
     Dates: start: 20160928, end: 20161002
  17. CONCOR [Concomitant]
     Active Substance: BISOPROLOL FUMARATE
     Indication: ATRIAL FIBRILLATION
     Route: 065
     Dates: start: 201607
  18. DIBONDRIN [Concomitant]
     Active Substance: DIPHENHYDRAMINE HYDROCHLORIDE
     Route: 065
     Dates: start: 20160919, end: 20160919
  19. RITUXIMAB [Suspect]
     Active Substance: RITUXIMAB
     Indication: B-CELL LYMPHOMA
     Dosage: MOST RECENT DOSE (700 MG) ON 19/SEP/2016?STARTING DOSE AND ROUTE FROM STUDY PROTOCOL
     Route: 042
     Dates: start: 20160804
  20. CYCLOPHOSPHAMIDE. [Suspect]
     Active Substance: CYCLOPHOSPHAMIDE
     Indication: B-CELL LYMPHOMA
     Dosage: MOST RECENT DOSE (1400 MG) ON 16/SEP/2016 AT START TIME 13:40?STARTING DOSE AND ROUTE FROM STUDY PRO
     Route: 042
     Dates: start: 20160805
  21. VINCRISTINE [Suspect]
     Active Substance: VINCRISTINE
     Indication: B-CELL LYMPHOMA
     Dosage: MOST RECENT DOSE (2 MG) ON 16/SEP/2016 AT START TIME 13:30?STARTING DOSE AND ROUTE FROM STUDY PROTOC
     Route: 042
     Dates: start: 20160805
  22. TORASEMID [Concomitant]
     Active Substance: TORSEMIDE
     Indication: PLEURAL EFFUSION
     Route: 065
     Dates: start: 201607
  23. ENTEROBENE [Concomitant]
     Indication: PROPHYLAXIS
     Route: 065
     Dates: start: 20160930, end: 20161014
  24. VENETOCLAX [Suspect]
     Active Substance: VENETOCLAX
     Indication: B-CELL LYMPHOMA
     Dosage: MOST RECENT DOSE (800 MG) ON 25/SEP/2016?ROUTE FROM STUDY PROTOCOL
     Route: 042
     Dates: start: 20160808
  25. DOXORUBICIN [Suspect]
     Active Substance: DOXORUBICIN
     Indication: B-CELL LYMPHOMA
     Dosage: MOST RECENT DOSE (95 MG) ON 16/SEP/2016 AT START TIME 13:30?STARTING DOSE AND ROUTE FROM STUDY PROTO
     Route: 042
     Dates: start: 20160805
  26. LOVENOX [Concomitant]
     Active Substance: ENOXAPARIN SODIUM
     Indication: THROMBOSIS PROPHYLAXIS
  27. NERISONA [Concomitant]
     Active Substance: DIFLUCORTOLONE VALERATE
     Indication: ERYTHEMA
     Route: 065
     Dates: start: 20160726
  28. TAVANIC [Concomitant]
     Active Substance: LEVOFLOXACIN
     Indication: INFECTION PROPHYLAXIS
     Route: 065
     Dates: start: 20160809, end: 20160930
  29. KALIORAL (AUSTRIA) [Concomitant]
     Indication: HYPERKALAEMIA
     Route: 065
     Dates: start: 20160805
  30. UROMITEXAN [Concomitant]
     Active Substance: MESNA
     Route: 065
     Dates: start: 20160916, end: 20160916
  31. SODIUM CHLORIDE. [Concomitant]
     Active Substance: SODIUM CHLORIDE
     Route: 065
     Dates: start: 20160926, end: 20161012
  32. POTASSIUM CHLORIDE. [Concomitant]
     Active Substance: POTASSIUM CHLORIDE
     Route: 065
     Dates: start: 20161001, end: 20161006
  33. LASIX [Concomitant]
     Active Substance: FUROSEMIDE
     Indication: OEDEMA PERIPHERAL
     Route: 065
     Dates: start: 20161005, end: 20161008
  34. PASPERTIN (AUSTRIA) [Concomitant]
     Indication: NAUSEA
     Route: 065
     Dates: start: 201608
  35. CALCIUM GLYCEROPHOSPHATE\CELLULOSE\POLYETHYLENE GLYCOL\SACCHARIN SODIUM\SODIUM HYDROXIDE\SODIUM LAURYL SULFATE\SODIUM MAGNESIUM SILICATE\SODIUM MONOFLUOROPHOSPHATE\SORBITOL\WATER [Concomitant]
     Active Substance: CALCIUM GLYCEROPHOSPHATE\POLYETHYLENE GLYCOLS\POWDERED CELLULOSE\SACCHARIN SODIUM DIHYDRATE\SODIUM HYDROXIDE\SODIUM LAURYL SULFATE\SODIUM MAGNESIUM SILICATE\SODIUM MONOFLUOROPHOSPHATE\SORBITOL\WATER
     Indication: CONSTIPATION
     Route: 065
     Dates: start: 201608
  36. DIBONDRIN [Concomitant]
     Active Substance: DIPHENHYDRAMINE HYDROCHLORIDE
     Route: 065
     Dates: start: 20160916, end: 20160916
  37. PASSEDAN [Concomitant]
     Indication: PROPHYLAXIS
     Route: 065
     Dates: start: 20161003

REACTIONS (1)
  - Neutropenia [Recovered/Resolved]

NARRATIVE: CASE EVENT DATE: 20160926
